FAERS Safety Report 21468814 (Version 1)
Quarter: 2022Q4

REPORT INFORMATION
  Report Type: Spontaneous
  Country: US (occurrence: US)
  Receive Date: 20221018
  Receipt Date: 20221018
  Transmission Date: 20230112
  Serious: Yes (Hospitalization)
  Sender: FDA-Public Use
  Company Number: US-SAMOHPHARM-2022004956

PATIENT

DRUGS (2)
  1. CARBAGLU [Suspect]
     Active Substance: CARGLUMIC ACID
     Indication: Hyperglycinaemia
     Dosage: 600 MILLIGRAM (3 TABLETS), QID, ACCREDO FIRST SHIPMENT DATE 28-DEC-2017
     Route: 048
     Dates: end: 2022
  2. CARBAGLU [Suspect]
     Active Substance: CARGLUMIC ACID
     Dosage: 800 MILLIGRAM (4 TABLETS), QID
     Route: 048
     Dates: start: 2022

REACTIONS (4)
  - Ammonia increased [Unknown]
  - Cough [Unknown]
  - Rhinorrhoea [Unknown]
  - Vomiting [Unknown]

NARRATIVE: CASE EVENT DATE: 20220101
